FAERS Safety Report 6445357-5 (Version None)
Quarter: 2009Q4

REPORT INFORMATION
  Report Type: 
  Country: None (occurrence: None)
  Receive Date: 20091118
  Receipt Date: 20091110
  Transmission Date: 20100525
  Serious: Yes (Other)
  Sender: FDA-Public Use
  Company Number: BR-ABBOTT-09P-020-0501659-00

PATIENT
  Sex: Female
  Weight: 90 kg

DRUGS (7)
  1. HUMIRA [Suspect]
     Indication: RHEUMATOID ARTHRITIS
     Route: 058
     Dates: start: 20060301, end: 20081101
  2. SYNTHROID [Suspect]
     Indication: HYPOTHYROIDISM
     Route: 048
  3. PREDNISONE [Concomitant]
     Indication: DRUG USE FOR UNKNOWN INDICATION
  4. UNKNOWN THERAPY [Concomitant]
     Indication: RHEUMATOID ARTHRITIS
     Route: 048
     Dates: start: 20070101
  5. SYNTHROID [Concomitant]
     Route: 048
     Dates: start: 19970101
  6. FLUOXETINE [Concomitant]
     Indication: DEPRESSION
     Route: 048
     Dates: start: 20091001
  7. HYDROXYCHLOROQUINE SULFATE [Concomitant]
     Indication: RHEUMATOID ARTHRITIS
     Route: 048
     Dates: start: 20091001

REACTIONS (5)
  - BREAST CANCER FEMALE [None]
  - BREAST MASS [None]
  - HEADACHE [None]
  - NAUSEA [None]
  - OSTEOPOROSIS [None]
